FAERS Safety Report 9524677 (Version 1)
Quarter: 2013Q3

REPORT INFORMATION
  Report Type: Spontaneous
  Country: GB (occurrence: None)
  Receive Date: 20130912
  Receipt Date: 20130912
  Transmission Date: 20140515
  Serious: Yes (Life-Threatening)
  Sender: FDA-Public Use
  Company Number: AUR-APL-2013-07482

PATIENT
  Age: 63 Year
  Sex: Female
  Weight: 79.82 kg

DRUGS (3)
  1. GABAPENTIN (GABAPENTIN) [Suspect]
     Indication: NEURALGIA
     Route: 048
     Dates: start: 20130226
  2. CO-AMILOZIDE (MODURETIC) [Concomitant]
  3. FLUOXETINE (FLUXETINE) [Concomitant]

REACTIONS (5)
  - Swollen tongue [None]
  - Wheezing [None]
  - Oedema peripheral [None]
  - Local swelling [None]
  - Eye swelling [None]
